FAERS Safety Report 16780834 (Version 2)
Quarter: 2025Q1

REPORT INFORMATION
  Report Type: Spontaneous
  Country: AU (occurrence: AU)
  Receive Date: 20190906
  Receipt Date: 20250219
  Transmission Date: 20250408
  Serious: Yes (Other)
  Sender: PFIZER
  Company Number: AU-SA-2019SA240111

PATIENT
  Age: 67 Year
  Sex: Male

DRUGS (5)
  1. RAMIPRIL [Suspect]
     Active Substance: RAMIPRIL
  2. ACETAMINOPHEN [Suspect]
     Active Substance: ACETAMINOPHEN
     Indication: Osteoarthritis
  3. BISOPROLOL FUMARATE [Suspect]
     Active Substance: BISOPROLOL FUMARATE
  4. CLOPIDOGREL BISULFATE [Suspect]
     Active Substance: CLOPIDOGREL BISULFATE
  5. SIMVASTATIN [Suspect]
     Active Substance: SIMVASTATIN
     Route: 048

REACTIONS (10)
  - Kidney infection [Unknown]
  - Pyelonephritis [Unknown]
  - Sepsis [Unknown]
  - Ureteric obstruction [Unknown]
  - Ureterolithiasis [Unknown]
  - Bacterial test positive [Unknown]
  - Blood glucose fluctuation [Unknown]
  - Escherichia test positive [Unknown]
  - Haemodynamic instability [Unknown]
  - Haemoglobin decreased [Unknown]
